FAERS Safety Report 4523937-1 (Version None)
Quarter: 2004Q4

REPORT INFORMATION
  Report Type: 
  Country: None (occurrence: None)
  Receive Date: 20041209
  Receipt Date: 20041206
  Transmission Date: 20050328
  Serious: Yes (Other)
  Sender: FDA-Public Use
  Company Number: PTWYE258405DEC04

PATIENT
  Age: 22 Year
  Sex: Male

DRUGS (2)
  1. EFFEXOR XR [Suspect]
     Indication: DEPRESSION
     Dosage: 75 MG 1X PER 1 DAY ORAL
     Route: 048
     Dates: start: 20041101, end: 20041104
  2. ALPRAZOLAM [Concomitant]

REACTIONS (3)
  - BLINDNESS TRANSIENT [None]
  - COLD SWEAT [None]
  - TACHYCARDIA [None]
